FAERS Safety Report 22029594 (Version 1)
Quarter: 2023Q1

REPORT INFORMATION
  Report Type: Report from Study
  Country: US (occurrence: US)
  Receive Date: 20230223
  Receipt Date: 20230223
  Transmission Date: 20230417
  Serious: Yes (Other)
  Sender: FDA-Public Use
  Company Number: US-JNJFOC-20230234239

PATIENT

DRUGS (4)
  1. DARATUMUMAB [Suspect]
     Active Substance: DARATUMUMAB
     Indication: Plasma cell myeloma refractory
     Route: 041
  2. CARFILZOMIB [Suspect]
     Active Substance: CARFILZOMIB
     Indication: Plasma cell myeloma refractory
     Route: 065
  3. POMALIDOMIDE [Suspect]
     Active Substance: POMALIDOMIDE
     Indication: Plasma cell myeloma refractory
     Route: 065
  4. DEXAMETHASONE [Suspect]
     Active Substance: DEXAMETHASONE
     Indication: Plasma cell myeloma refractory
     Route: 065

REACTIONS (37)
  - Febrile neutropenia [Unknown]
  - Acute kidney injury [Unknown]
  - Electrocardiogram QT prolonged [Unknown]
  - Haemolytic uraemic syndrome [Unknown]
  - Coronary artery disease [Unknown]
  - COVID-19 pneumonia [Unknown]
  - Hyperglycaemia [Unknown]
  - Neutropenia [Unknown]
  - Thrombocytopenia [Unknown]
  - Upper respiratory tract infection [Unknown]
  - Lymphopenia [Unknown]
  - Infection [Unknown]
  - Hypertension [Unknown]
  - Anaemia [Unknown]
  - Fatigue [Unknown]
  - Dyspnoea [Unknown]
  - Diarrhoea [Unknown]
  - Pneumonia [Unknown]
  - Hypokalaemia [Unknown]
  - Neuropathy peripheral [Unknown]
  - Cardiac disorder [Unknown]
  - Hypophosphataemia [Unknown]
  - Hyperkalaemia [Unknown]
  - Embolism [Unknown]
  - Ejection fraction decreased [Unknown]
  - Supraventricular tachycardia [Unknown]
  - Hyponatraemia [Unknown]
  - Palpitations [Unknown]
  - Hypercalcaemia [Unknown]
  - Sinus tachycardia [Unknown]
  - Sinus bradycardia [Unknown]
  - Rash [Unknown]
  - Hypernatraemia [Unknown]
  - Hepatic enzyme increased [Unknown]
  - Hypocalcaemia [Unknown]
  - Nausea [Unknown]
  - Infusion related reaction [Unknown]
